FAERS Safety Report 4743258-1 (Version None)
Quarter: 2005Q3

REPORT INFORMATION
  Report Type: 
  Country: None (occurrence: None)
  Receive Date: 20050809
  Receipt Date: 20050728
  Transmission Date: 20060218
  Serious: Yes (Other)
  Sender: FDA-Public Use
  Company Number: 216505

PATIENT
  Age: 12 Year
  Sex: Female

DRUGS (1)
  1. NUTROPIN AQ [Suspect]
     Indication: TURNER'S SYNDROME

REACTIONS (1)
  - INTRAOCULAR PRESSURE INCREASED [None]
